FAERS Safety Report 6736019-5 (Version None)
Quarter: 2010Q2

REPORT INFORMATION
  Report Type: 
  Country: None (occurrence: None)
  Receive Date: 20100521
  Receipt Date: 20100512
  Transmission Date: 20101027
  Serious: Yes (Death, Hospitalization)
  Sender: FDA-Public Use
  Company Number: US-AMGEN-QUU392187

PATIENT
  Sex: Female
  Weight: 85.4 kg

DRUGS (15)
  1. NPLATE [Suspect]
     Indication: IDIOPATHIC THROMBOCYTOPENIC PURPURA
     Dates: start: 20091130
  2. NORVASC [Concomitant]
  3. COLACE [Concomitant]
  4. ZANAFLEX [Concomitant]
  5. UNSPECIFIED MEDICATION [Concomitant]
  6. LASIX [Concomitant]
  7. HYDRALAZINE HCL [Concomitant]
  8. NOVOLOG [Concomitant]
  9. LEVEMIR [Concomitant]
  10. LOMOTIL [Concomitant]
  11. OXYCODONE [Concomitant]
  12. PROTONIX [Concomitant]
  13. CARAFATE [Concomitant]
  14. PREDNISONE [Concomitant]
  15. KEPPRA [Concomitant]

REACTIONS (3)
  - CARDIAC ARREST [None]
  - PLATELET COUNT DECREASED [None]
  - THERAPEUTIC RESPONSE DECREASED [None]
